FAERS Safety Report 4743623-2 (Version None)
Quarter: 2005Q3

REPORT INFORMATION
  Report Type: 
  Country: None (occurrence: None)
  Receive Date: 20050809
  Receipt Date: 20050728
  Transmission Date: 20060218
  Serious: Yes (Other)
  Sender: FDA-Public Use
  Company Number: 1515-100

PATIENT
  Age: 15 Year
  Sex: Female
  Weight: 50 kg

DRUGS (1)
  1. VENOFER (IRON SUCROSE INJ.) 20MG/ML 5 ML AMPULE VIFOR INTERNATIONAL IN [Suspect]
     Indication: IRON DEFICIENCY ANAEMIA
     Dosage: 100MG
     Dates: start: 20050511, end: 20050526

REACTIONS (1)
  - SYNCOPE [None]
